FAERS Safety Report 9008523 (Version 1)
Quarter: 2013Q1

REPORT INFORMATION
  Report Type: Spontaneous
  Country: US (occurrence: US)
  Receive Date: 20130111
  Receipt Date: 20130111
  Transmission Date: 20140127
  Serious: Yes (Hospitalization)
  Sender: FDA-Public Use
  Company Number: US-009507513-1301XAA003104

PATIENT
  Sex: Female

DRUGS (4)
  1. SINGULAIR [Suspect]
     Dosage: 10 MG, QD
     Route: 048
  2. LORAZEPAM [Suspect]
     Route: 048
  3. CLINDAMYCIN HYDROCHLORIDE [Suspect]
     Route: 048
  4. ZINC OROTATE [Suspect]
     Dosage: THE PRESCRIBED AMOUNT
     Route: 048

REACTIONS (6)
  - Syncope [Unknown]
  - Suicide attempt [Unknown]
  - Intentional overdose [Unknown]
  - Hallucination [Unknown]
  - Fatigue [Unknown]
  - Abdominal pain [Unknown]
